FAERS Safety Report 9311112 (Version 1)
Quarter: 2013Q2

REPORT INFORMATION
  Report Type: Spontaneous
  Country: BR (occurrence: BR)
  Receive Date: 20130528
  Receipt Date: 20130528
  Transmission Date: 20140414
  Serious: Yes (Other)
  Sender: FDA-Public Use
  Company Number: BR-PFIZER INC-2013160976

PATIENT
  Age: 70 Year
  Sex: Female

DRUGS (12)
  1. ATENOLOL [Suspect]
     Dosage: 25 MG, UNK
     Route: 065
  2. TAMOXIFEN CITRATE [Suspect]
     Indication: BREAST CANCER
     Dosage: UNK
     Route: 065
     Dates: start: 1999, end: 2004
  3. FASLODEX [Suspect]
     Indication: BREAST CANCER
     Dosage: 250 MG / 5 ML, UNK
     Route: 030
     Dates: start: 201207
  4. ANASTROZOLE [Suspect]
     Indication: BREAST CANCER
     Dosage: UNK
     Route: 065
     Dates: start: 201107, end: 201207
  5. OMEPRAZOL [Suspect]
     Dosage: 20 MG, UNK
     Route: 065
  6. XELODA [Suspect]
     Indication: LUNG NEOPLASM MALIGNANT
     Dosage: UNK
     Route: 065
     Dates: start: 2004
  7. DIOVAN (VALSARTAN) [Concomitant]
     Indication: LUNG NEOPLASM MALIGNANT
     Dosage: 160/5 MG, UNK
     Route: 065
  8. STILNOX [Concomitant]
     Indication: LUNG NEOPLASM MALIGNANT
     Dosage: 10 MG, UNK
     Route: 065
  9. AROMASIN [Concomitant]
     Indication: LUNG NEOPLASM MALIGNANT
     Dosage: UNK
     Route: 065
     Dates: start: 2004
  10. CALCIUM [Concomitant]
     Dosage: 500 MG, UNK
     Route: 065
  11. ADDERA D3 [Concomitant]
     Dosage: UNK
     Route: 065
  12. VITAMIN C WITH ZINC [Concomitant]
     Dosage: UNK
     Route: 065

REACTIONS (7)
  - Pulmonary mass [Not Recovered/Not Resolved]
  - Metastases to lung [Unknown]
  - Hypotonia [Not Recovered/Not Resolved]
  - Carbohydrate antigen 15-3 increased [Not Recovered/Not Resolved]
  - Skin disorder [Not Recovered/Not Resolved]
  - Depressed mood [Not Recovered/Not Resolved]
  - Skin exfoliation [Recovered/Resolved]
